FAERS Safety Report 22388864 (Version 2)
Quarter: 2023Q2

REPORT INFORMATION
  Report Type: Report from Study
  Country: US (occurrence: US)
  Receive Date: 20230531
  Receipt Date: 20230621
  Transmission Date: 20230722
  Serious: Yes (Other)
  Sender: FDA-Public Use
  Company Number: US-INCYTE CORPORATION-2023IN003872

PATIENT

DRUGS (2)
  1. JAKAFI [Suspect]
     Active Substance: RUXOLITINIB
     Indication: Myelofibrosis
     Dosage: 15 MILLIGRAM, BID
     Route: 048
     Dates: start: 202303, end: 202304
  2. VONJO [Suspect]
     Active Substance: PACRITINIB
     Indication: Product used for unknown indication
     Dosage: 100MG-200MG, Q12H
     Route: 065

REACTIONS (11)
  - Nephrolithiasis [Unknown]
  - Clostridium difficile infection [Unknown]
  - Asthenia [Unknown]
  - Splenomegaly [Unknown]
  - Fatigue [Unknown]
  - Breast mass [Unknown]
  - Product dose omission issue [Unknown]
  - Platelet count decreased [Recovering/Resolving]
  - Haemoglobin decreased [Unknown]
  - Nausea [Unknown]
  - Urinary tract infection [Unknown]

NARRATIVE: CASE EVENT DATE: 20230401
